FAERS Safety Report 23710569 (Version 1)
Quarter: 2024Q2

REPORT INFORMATION
  Report Type: Spontaneous
  Country: US (occurrence: US)
  Receive Date: 20240405
  Receipt Date: 20240405
  Transmission Date: 20240716
  Serious: No
  Sender: FDA-Public Use
  Company Number: US-MELINTA THERAPEUTICS, LLC-US-MLNT-24-00094

PATIENT
  Sex: Male

DRUGS (1)
  1. KIMYRSA [Suspect]
     Active Substance: ORITAVANCIN DIPHOSPHATE
     Indication: Product used for unknown indication
     Dosage: 1200 MILLIGRAM, SINGLE
     Route: 041

REACTIONS (4)
  - Peripheral swelling [Unknown]
  - Erythema [Unknown]
  - Flushing [Unknown]
  - Back pain [Unknown]
